FAERS Safety Report 10374155 (Version 2)
Quarter: 2014Q3

REPORT INFORMATION
  Report Type: Report from Study
  Country: US (occurrence: US)
  Receive Date: 20140811
  Receipt Date: 20140922
  Transmission Date: 20150326
  Serious: Yes (Hospitalization)
  Sender: FDA-Public Use
  Company Number: US-ROCHE-1445300

PATIENT
  Age: 50 Year
  Sex: Female
  Weight: 65.2 kg

DRUGS (7)
  1. TEMOZOLOMIDE [Concomitant]
     Active Substance: TEMOZOLOMIDE
     Dosage: 2 CYCLES OF 5 DAYS.
     Route: 065
     Dates: end: 20131017
  2. LEVETIRACETAM. [Concomitant]
     Active Substance: LEVETIRACETAM
     Dosage: DAILY
     Route: 065
  3. BEVACIZUMAB [Suspect]
     Active Substance: BEVACIZUMAB
     Indication: MALIGNANT GLIOMA
     Route: 065
     Dates: start: 20140710
  4. VORINOSTAT [Suspect]
     Active Substance: VORINOSTAT
     Indication: MALIGNANT GLIOMA
     Dosage: 1-7 AND 15-21 OF 28 DAY CYCLE
     Route: 048
     Dates: start: 20140710, end: 20140716
  5. ENOXAPARIN [Concomitant]
     Active Substance: ENOXAPARIN
     Route: 058
  6. TEMOZOLOMIDE [Concomitant]
     Active Substance: TEMOZOLOMIDE
     Dosage: WITH RADIATION,DAILY
     Route: 065
     Dates: start: 20130531, end: 20130720
  7. PANTOPRAZOLE [Concomitant]
     Active Substance: PANTOPRAZOLE SODIUM
     Dosage: DAILY
     Route: 065

REACTIONS (6)
  - Hypoxia [Unknown]
  - Neutrophil count decreased [Unknown]
  - Malaise [Unknown]
  - Convulsion [Unknown]
  - Pneumonitis [Unknown]
  - Pneumonia [Unknown]

NARRATIVE: CASE EVENT DATE: 20140803
